FAERS Safety Report 25709066 (Version 1)
Quarter: 2025Q3

REPORT INFORMATION
  Report Type: Report from Study
  Country: US (occurrence: US)
  Receive Date: 20250821
  Receipt Date: 20250821
  Transmission Date: 20251021
  Serious: Yes (Other)
  Sender: TAKEDA
  Company Number: US-TAKEDA-2025TUS073722

PATIENT
  Age: 63 Year
  Sex: Male

DRUGS (1)
  1. BRIGATINIB [Suspect]
     Active Substance: BRIGATINIB
     Indication: Lung carcinoma cell type unspecified stage 0
     Dosage: 180 MILLIGRAM, QD
     Dates: start: 20210803

REACTIONS (4)
  - Brain neoplasm [Unknown]
  - Neuropathy peripheral [Unknown]
  - Blood pressure increased [Unknown]
  - Blood cholesterol increased [Unknown]

NARRATIVE: CASE EVENT DATE: 20240813
